FAERS Safety Report 12276616 (Version 1)
Quarter: 2016Q2

REPORT INFORMATION
  Report Type: Spontaneous
  Country: FR (occurrence: FR)
  Receive Date: 20160418
  Receipt Date: 20160418
  Transmission Date: 20160815
  Serious: Yes (Other)
  Sender: FDA-Public Use
  Company Number: FR-GLAXOSMITHKLINE-FR2016GSK023757

PATIENT
  Sex: Male
  Weight: 64 kg

DRUGS (3)
  1. XEROQUEL [Concomitant]
     Active Substance: QUETIAPINE FUMARATE
     Indication: PRODUCT USED FOR UNKNOWN INDICATION
     Dosage: 50 MG, 1D
  2. LAMICTAL [Suspect]
     Active Substance: LAMOTRIGINE
     Indication: BIPOLAR DISORDER
     Dosage: UNK
     Route: 048
     Dates: start: 20120111, end: 20160221
  3. LAMICTAL [Suspect]
     Active Substance: LAMOTRIGINE
     Indication: BIPOLAR DISORDER
     Dosage: UNK
     Route: 048
     Dates: start: 20120111, end: 20160221

REACTIONS (9)
  - Myalgia [Recovered/Resolved with Sequelae]
  - Hypoacusis [Recovered/Resolved]
  - Lethargy [Recovered/Resolved]
  - Arthralgia [Recovering/Resolving]
  - Somnolence [Recovered/Resolved]
  - Tinnitus [Recovered/Resolved]
  - Polyneuropathy [Recovered/Resolved with Sequelae]
  - Arthritis [Recovered/Resolved with Sequelae]
  - Visual acuity reduced [Recovered/Resolved]

NARRATIVE: CASE EVENT DATE: 2012
